FAERS Safety Report 4599649-5 (Version None)
Quarter: 2005Q1

REPORT INFORMATION
  Report Type: 
  Country: None (occurrence: None)
  Receive Date: 20050304
  Receipt Date: 20050304
  Transmission Date: 20050727
  Serious: Yes (Life-Threatening, Hospitalization)
  Sender: FDA-Public Use
  Company Number: None

PATIENT
  Age: 78 Year
  Sex: Male
  Weight: 83.4619 kg

DRUGS (1)
  1. COREG [Suspect]
     Indication: CARDIAC VALVE DISEASE
     Dosage: 12.5 MG 1 TWICE DAY/3 MONTHS
     Dates: start: 20040505, end: 20040715

REACTIONS (4)
  - DYSPNOEA [None]
  - FLUID RETENTION [None]
  - INFLUENZA [None]
  - PNEUMONIA [None]
